FAERS Safety Report 15597057 (Version 1)
Quarter: 2018Q4

REPORT INFORMATION
  Report Type: Spontaneous
  Country: NL (occurrence: NL)
  Receive Date: 20181108
  Receipt Date: 20181108
  Transmission Date: 20190205
  Serious: Yes (Other)
  Sender: FDA-Public Use
  Company Number: NL-AUROBINDO-AUR-APL-2018-053982

PATIENT
  Age: 38 Year
  Sex: Female
  Weight: 92 kg

DRUGS (1)
  1. OLMESARTAN MEDOXOMIL FILM COATED TABLET 10 MG [Suspect]
     Active Substance: OLMESARTAN MEDOXOMIL
     Indication: HYPERTENSION
     Dosage: 10 MILLIGRAM, ONCE A DAY, 1X PER DAY 1 PCS
     Route: 065
     Dates: start: 20180212

REACTIONS (2)
  - Neuropathy peripheral [Not Recovered/Not Resolved]
  - Menorrhagia [Not Recovered/Not Resolved]

NARRATIVE: CASE EVENT DATE: 20180318
